FAERS Safety Report 16541333 (Version 1)
Quarter: 2019Q3

REPORT INFORMATION
  Report Type: Spontaneous
  Country: DE (occurrence: DE)
  Receive Date: 20190708
  Receipt Date: 20190708
  Transmission Date: 20191004
  Serious: Yes (Death, Life-Threatening, Hospitalization)
  Sender: FDA-Public Use
  Company Number: DE-ASTRAZENECA-2019SE95881

PATIENT
  Age: 74 Year
  Sex: Female
  Weight: 74 kg

DRUGS (11)
  1. ASPIRIN PROTECT [Suspect]
     Active Substance: ASPIRIN
     Route: 048
  2. PANTOPRAZOL [Concomitant]
     Active Substance: PANTOPRAZOLE SODIUM
     Route: 048
  3. SORTIS [Concomitant]
     Active Substance: ATORVASTATIN
     Route: 048
  4. ZOPICLON [Concomitant]
     Active Substance: ZOPICLONE
     Dosage: 7.5 MG, ON DEMAND
     Route: 048
  5. CIPRALEX [Suspect]
     Active Substance: ESCITALOPRAM OXALATE
     Dosage: 20 MG, PAUSE, DROPS
     Route: 048
  6. APROVEL [Concomitant]
     Active Substance: IRBESARTAN
     Route: 048
  7. BELOC-ZOK [Concomitant]
     Active Substance: METOPROLOL SUCCINATE
     Route: 048
  8. TORASEMIDE [Concomitant]
     Active Substance: TORSEMIDE
     Route: 048
  9. BRILIQUE [Suspect]
     Active Substance: TICAGRELOR
     Route: 048
  10. MIRTAZAPINE. [Concomitant]
     Active Substance: MIRTAZAPINE
     Route: 048
  11. SPIRONOLACTONE. [Concomitant]
     Active Substance: SPIRONOLACTONE
     Dosage: 50 MG, 0.5-0-0-0
     Route: 048

REACTIONS (7)
  - Product prescribing error [Unknown]
  - Suicidal ideation [Unknown]
  - Hyponatraemia [Unknown]
  - Gastrointestinal haemorrhage [Unknown]
  - Depressed mood [Unknown]
  - Hypertension [Unknown]
  - Haematochezia [Unknown]
